FAERS Safety Report 5606292-5 (Version None)
Quarter: 2008Q1

REPORT INFORMATION
  Report Type: 
  Country: None (occurrence: None)
  Receive Date: 20080129
  Receipt Date: 20070503
  Transmission Date: 20080703
  Serious: No
  Sender: FDA-Public Use
  Company Number: A0649887A

PATIENT
  Age: 51 Year
  Sex: Female

DRUGS (2)
  1. BUPROPION HCL [Suspect]
     Dosage: 100MG THREE TIMES PER DAY
  2. MULTI-VITAMIN [Concomitant]

REACTIONS (1)
  - DRUG EFFECT DECREASED [None]
